FAERS Safety Report 20772670 (Version 1)
Quarter: 2022Q2

REPORT INFORMATION
  Report Type: Report from Study
  Country: US (occurrence: US)
  Receive Date: 20220502
  Receipt Date: 20220502
  Transmission Date: 20220720
  Serious: Yes (Hospitalization)
  Sender: FDA-Public Use
  Company Number: US-BRISTOL-MYERS SQUIBB COMPANY-2022-023787

PATIENT
  Age: 64 Year
  Sex: Female
  Weight: 78.5 kg

DRUGS (2)
  1. ABATACEPT [Suspect]
     Active Substance: ABATACEPT
     Indication: Prophylaxis
     Dosage: ONCE DAILY, IV INFUSION
     Route: 065
     Dates: start: 20220218, end: 20220218
  2. GILTERITINIB [Suspect]
     Active Substance: GILTERITINIB
     Indication: Acute myeloid leukaemia
     Dosage: DAILY
     Route: 048
     Dates: start: 20220317

REACTIONS (1)
  - Suspected COVID-19 [Unknown]

NARRATIVE: CASE EVENT DATE: 20220418
